FAERS Safety Report 4310856-9 (Version None)
Quarter: 2004Q1

REPORT INFORMATION
  Report Type: 
  Country: None (occurrence: None)
  Receive Date: 20040304
  Receipt Date: 20040220
  Transmission Date: 20041129
  Serious: Yes (Hospitalization, Disabling, Other)
  Sender: FDA-Public Use
  Company Number: PHBS2004DK02601

PATIENT
  Age: 54 Year
  Sex: Male

DRUGS (21)
  1. LAMISIL [Suspect]
     Indication: FUNGAL SKIN INFECTION
     Dosage: 250 MG/DAY
     Route: 048
     Dates: start: 20040108, end: 20040125
  2. PREDNISOLONE [Concomitant]
     Indication: SYSTEMIC LUPUS ERYTHEMATOSUS
     Dosage: 20 MG, QD
  3. PREDNISOLONE [Concomitant]
     Dosage: 50 MG, QD
     Dates: start: 20040127
  4. PREDNISOLONE [Concomitant]
     Dosage: 75 MG, QD
     Dates: start: 20040129
  5. PREDNISOLONE [Concomitant]
     Dosage: 50 MG, QD
     Dates: start: 20040210
  6. PREDNISOLONE [Concomitant]
     Dosage: 40 MG, QD
     Dates: start: 20040216
  7. PANTOLOC ^BYK GULDEN^ [Concomitant]
     Indication: NASOPHARYNGITIS
     Dosage: 20 MG, QD
     Dates: start: 20020610
  8. HEXADILAT [Concomitant]
     Indication: HYPERTENSION
     Dosage: 10 MG, BID
     Dates: start: 20000101
  9. PLAQUENIL [Concomitant]
     Indication: SYSTEMIC LUPUS ERYTHEMATOSUS
     Dosage: 200 MG, QD
     Dates: start: 20021021
  10. TAFIL [Concomitant]
     Dosage: .5 MG, BID
  11. UNIKALK WITH D-VITAMIN [Concomitant]
     Dosage: 1 DF, BID
     Route: 048
  12. PINEX [Concomitant]
     Dosage: 1 G, BID
  13. B-COMBIN FORTE TABLET [Concomitant]
     Dosage: 1 DF, TID
     Route: 048
  14. THIAMIN [Concomitant]
     Dosage: 300 MG, QD
  15. STRONG E-VITAMIN [Concomitant]
     Dosage: 100 MG, QD
  16. STRONG C-VITAMIN [Concomitant]
     Dosage: 500 MG, QD
  17. SKANALKA [Concomitant]
     Dosage: UNK, TID
  18. FOSAMAX [Concomitant]
     Dosage: 70 MG, QD
  19. ANTABUSE [Concomitant]
     Dosage: 100 MG, ONCE ON TUESDAY + FRIDAY
  20. LAMISIL [Suspect]
     Dosage: UNK, UNK
     Route: 061
  21. IMUREL [Concomitant]
     Indication: SYSTEMIC LUPUS ERYTHEMATOSUS
     Dosage: 100 MG, QD

REACTIONS (18)
  - ALCOHOLISM [None]
  - ALOPECIA [None]
  - BURNING SENSATION [None]
  - CATARACT [None]
  - CUTANEOUS LUPUS ERYTHEMATOSUS [None]
  - DIAPHRAGMATIC HERNIA [None]
  - GLAUCOMA [None]
  - HIATUS HERNIA [None]
  - INTRAOCULAR PRESSURE INCREASED [None]
  - MUCOUS MEMBRANE DISORDER [None]
  - PAIN [None]
  - RASH [None]
  - RED BLOOD CELL ABNORMALITY [None]
  - SKIN LESION [None]
  - SKIN OEDEMA [None]
  - STEVENS-JOHNSON SYNDROME [None]
  - SUICIDAL IDEATION [None]
  - VISION BLURRED [None]
